FAERS Safety Report 17258986 (Version 3)
Quarter: 2020Q4

REPORT INFORMATION
  Report Type: Spontaneous
  Country: CN (occurrence: CN)
  Receive Date: 20200110
  Receipt Date: 20201216
  Transmission Date: 20210113
  Serious: Yes (Hospitalization, Other)
  Sender: FDA-Public Use
  Company Number: CN-SA-2020SA003892

PATIENT

DRUGS (3)
  1. CLOPIDOGREL BISULFATE. [Suspect]
     Active Substance: CLOPIDOGREL BISULFATE
     Indication: CEREBRAL INFARCTION
  2. CANDESARTAN. [Concomitant]
     Active Substance: CANDESARTAN
  3. CLOPIDOGREL BISULFATE. [Suspect]
     Active Substance: CLOPIDOGREL BISULFATE
     Indication: LACUNAR INFARCTION
     Dosage: UNK
     Dates: start: 20190205, end: 20190215

REACTIONS (5)
  - Blood insulin increased [Recovered/Resolved]
  - Insulin C-peptide increased [Recovered/Resolved]
  - Hypoglycaemia [Recovered/Resolved]
  - Seizure [Unknown]
  - Insulin autoimmune syndrome [Recovered/Resolved]

NARRATIVE: CASE EVENT DATE: 20190301
